FAERS Safety Report 6148838-7 (Version None)
Quarter: 2009Q2

REPORT INFORMATION
  Report Type: 
  Country: None (occurrence: None)
  Receive Date: 20090406
  Receipt Date: 20090219
  Transmission Date: 20091009
  Serious: Yes (Hospitalization)
  Sender: FDA-Public Use
  Company Number: FR-GUERBET-20090040

PATIENT
  Age: 34 Year
  Sex: Female

DRUGS (2)
  1. HEXABRIX [Suspect]
     Indication: ARTHROGRAM
     Dosage: DOSAGE: UNSPECIFIED UNIT, 1, 1, TOTAL
     Route: 014
     Dates: start: 20090218, end: 20090218
  2. XYZAL [Concomitant]

REACTIONS (8)
  - ANAPHYLACTIC SHOCK [None]
  - CONTRAST MEDIA ALLERGY [None]
  - HYPERTHERMIA [None]
  - LABORATORY TEST INTERFERENCE [None]
  - LEUKOPENIA [None]
  - LYMPHADENOPATHY [None]
  - NEUTROPENIA [None]
  - TYPE IV HYPERSENSITIVITY REACTION [None]
